FAERS Safety Report 19573260 (Version 1)
Quarter: 2021Q3

REPORT INFORMATION
  Report Type: Spontaneous
  Country: FR (occurrence: FR)
  Receive Date: 20210717
  Receipt Date: 20210717
  Transmission Date: 20211014
  Serious: Yes (Hospitalization)
  Sender: FDA-Public Use
  Company Number: FR-AUROBINDO-AUR-APL-2021-030032

PATIENT
  Age: 23 Year
  Sex: Male

DRUGS (4)
  1. OLANZAPINE. [Suspect]
     Active Substance: OLANZAPINE
     Indication: MANIA
     Dosage: 10 MILLIGRAM, ONCE A DAY
     Route: 048
     Dates: start: 20210504, end: 20210514
  2. TERCIAN [Suspect]
     Active Substance: CYAMEMAZINE
     Indication: PSYCHOTIC DISORDER
     Dosage: LONG?TERM, DOSAGE UNKNOWN
     Route: 048
  3. ARIPIPRAZOLE ACCORD [Suspect]
     Active Substance: ARIPIPRAZOLE
     Indication: PSYCHOTIC DISORDER
     Dosage: 15 MILLIGRAM, ONCE A DAY
     Route: 048
     Dates: start: 20210504
  4. DEPAKOTE [Suspect]
     Active Substance: DIVALPROEX SODIUM
     Indication: PSYCHOTIC DISORDER
     Dosage: 750 MILLIGRAM, ONCE A DAY
     Route: 048
     Dates: start: 20210419, end: 20210514

REACTIONS (1)
  - Blood creatine phosphokinase increased [Recovered/Resolved]

NARRATIVE: CASE EVENT DATE: 20210510
